FAERS Safety Report 7604905-X (Version None)
Quarter: 2011Q3

REPORT INFORMATION
  Report Type: 
  Country: None (occurrence: None)
  Receive Date: 20110712
  Receipt Date: 20110629
  Transmission Date: 20111222
  Serious: Yes (Death)
  Sender: FDA-Public Use
  Company Number: AU-MYLANLABS-2011S1013781

PATIENT
  Age: 22 Year

DRUGS (3)
  1. QUETIAPINE [Suspect]
     Route: 065
  2. ALPRAZOLAM [Suspect]
     Dosage: INGESTED 37 TABLETS
     Route: 048
  3. METHADONE HCL [Suspect]
     Dosage: SELF-ADMINISTERED 2 TAKEAWAY DOSES
     Route: 065

REACTIONS (3)
  - TOXICITY TO VARIOUS AGENTS [None]
  - OVERDOSE [None]
  - RESPIRATORY DEPRESSION [None]
